FAERS Safety Report 7832625-5 (Version None)
Quarter: 2011Q4

REPORT INFORMATION
  Report Type: 
  Country: None (occurrence: None)
  Receive Date: 20111024
  Receipt Date: 20111012
  Transmission Date: 20120403
  Serious: No
  Sender: FDA-Public Use
  Company Number: US-BIOGENIDEC-2011BI024698

PATIENT
  Sex: Female

DRUGS (2)
  1. REBIF [Concomitant]
     Indication: MULTIPLE SCLEROSIS
  2. TYSABRI [Suspect]
     Indication: MULTIPLE SCLEROSIS
     Route: 042
     Dates: start: 20110622

REACTIONS (11)
  - PYREXIA [None]
  - ASTHENIA [None]
  - DYSARTHRIA [None]
  - PAIN [None]
  - CONFUSIONAL STATE [None]
  - MIGRAINE [None]
  - FEELING ABNORMAL [None]
  - STOMATITIS [None]
  - NAUSEA [None]
  - FATIGUE [None]
  - CHILLS [None]
